FAERS Safety Report 8789959 (Version 1)
Quarter: 2012Q4

REPORT INFORMATION
  Report Type: Report from Study
  Country: US (occurrence: US)
  Receive Date: 20120917
  Receipt Date: 20120917
  Transmission Date: 20130627
  Serious: Yes (Other)
  Sender: FDA-Public Use
  Company Number: US-JNJFOC-20120904379

PATIENT
  Sex: Female
  Weight: 74.84 kg

DRUGS (9)
  1. REMICADE [Suspect]
     Indication: RHEUMATOID ARTHRITIS
     Route: 042
     Dates: start: 2010
  2. REMICADE [Suspect]
     Indication: RHEUMATOID ARTHRITIS
     Route: 042
     Dates: start: 200610, end: 200711
  3. ORENCIA [Suspect]
     Indication: RHEUMATOID ARTHRITIS
     Route: 065
     Dates: start: 2008
  4. PREDNISONE [Concomitant]
     Indication: ARTHRITIS
     Route: 065
  5. LYRICA [Concomitant]
     Indication: TENDON DISORDER
     Route: 048
     Dates: start: 200604
  6. TOLMETIN [Concomitant]
     Indication: ANTIINFLAMMATORY THERAPY
     Route: 048
     Dates: start: 2007
  7. LEFLUNOMIDE [Concomitant]
     Indication: ARTHRITIS
     Route: 065
     Dates: start: 2008
  8. MSM [Concomitant]
     Indication: MEDICAL DIET
     Route: 048
  9. ALL OTHER THERAPEUTIC PRODUCTS [Concomitant]
     Indication: MEDICAL DIET
     Dosage: 2-3 pills daily
     Route: 048

REACTIONS (6)
  - Syncope [Recovered/Resolved]
  - Staphylococcal infection [Recovered/Resolved]
  - Disease progression [Not Recovered/Not Resolved]
  - Arthropod bite [Recovered/Resolved]
  - Influenza like illness [Not Recovered/Not Resolved]
  - Oedema peripheral [Not Recovered/Not Resolved]
